FAERS Safety Report 12170249 (Version 1)
Quarter: 2016Q1

REPORT INFORMATION
  Report Type: Spontaneous
  Country: PT (occurrence: PT)
  Receive Date: 20160311
  Receipt Date: 20160311
  Transmission Date: 20160526
  Serious: Yes (Disabling)
  Sender: FDA-Public Use
  Company Number: PT-009507513-1603PRT002062

PATIENT
  Age: 25 Year
  Sex: Female

DRUGS (1)
  1. CIRCLET [Suspect]
     Active Substance: ETHINYL ESTRADIOL\ETONOGESTREL
     Indication: CONTRACEPTION
     Dosage: 1 RING EVERY 3 WEEKS
     Route: 067
     Dates: end: 2016

REACTIONS (5)
  - Product substitution issue [Recovered/Resolved]
  - Headache [Recovered/Resolved]
  - Breast pain [Recovered/Resolved]
  - Dysmenorrhoea [Recovered/Resolved]
  - Menstrual disorder [Recovered/Resolved]
